FAERS Safety Report 9604383 (Version 1)
Quarter: 2013Q4

REPORT INFORMATION
  Report Type: Spontaneous
  Country: US (occurrence: US)
  Receive Date: 20131008
  Receipt Date: 20131008
  Transmission Date: 20140711
  Serious: No
  Sender: FDA-Public Use
  Company Number: US-GLAXOSMITHKLINE-A1028922A

PATIENT
  Age: 16 Year
  Sex: Male
  Weight: 44.1 kg

DRUGS (5)
  1. POTIGA [Suspect]
     Indication: CONVULSION
     Dosage: 200MG THREE TIMES PER DAY
     Route: 048
     Dates: start: 201305
  2. LAMICTAL [Concomitant]
  3. CLOBAZAM [Concomitant]
  4. ZONEGRAN [Concomitant]
  5. SABRIL [Concomitant]

REACTIONS (1)
  - Chromaturia [Recovered/Resolved]
